FAERS Safety Report 8932476 (Version 1)
Quarter: 2012Q4

REPORT INFORMATION
  Report Type: Spontaneous
  Country: DE (occurrence: None)
  Receive Date: 20121120
  Receipt Date: 20121120
  Transmission Date: 20130627
  Serious: Yes (Disabling, Other)
  Sender: FDA-Public Use
  Company Number: 2012P1063760

PATIENT
  Age: 22 Year
  Sex: Male

DRUGS (2)
  1. CORTISONE [Suspect]
  2. PREDNISOLONE [Suspect]

REACTIONS (8)
  - Paraparesis [None]
  - Spinal cord compression [None]
  - Spastic paraplegia [None]
  - Incontinence [None]
  - Fat tissue increased [None]
  - Osteoporosis [None]
  - Cardiac failure [None]
  - Skin disorder [None]
